FAERS Safety Report 13167252 (Version 1)
Quarter: 2017Q1

REPORT INFORMATION
  Report Type: Spontaneous
  Country: JP (occurrence: JP)
  Receive Date: 20170131
  Receipt Date: 20170131
  Transmission Date: 20170428
  Serious: Yes (Death, Other)
  Sender: FDA-Public Use
  Company Number: JP-PFIZER INC-2017039412

PATIENT
  Age: 66 Year
  Sex: Male
  Weight: 64 kg

DRUGS (35)
  1. CAMPTO [Suspect]
     Active Substance: IRINOTECAN
     Dosage: 250 MG, 1X/DAY
     Route: 041
     Dates: start: 20140522, end: 20140522
  2. ELPLAT [Suspect]
     Active Substance: OXALIPLATIN
     Dosage: 140 MG, 1X/DAY
     Route: 041
     Dates: start: 20140130, end: 20140130
  3. LEVOFOLINATE [Suspect]
     Active Substance: LEVOLEUCOVORIN CALCIUM
     Dosage: 340 MG, 1X/DAY
     Route: 041
     Dates: start: 20140313, end: 20140313
  4. 5-FU /00098801/ [Concomitant]
     Active Substance: FLUOROURACIL
     Dosage: 3020 MG, UNK
  5. CAMPTO [Suspect]
     Active Substance: IRINOTECAN
     Dosage: 250 MG, 1X/DAY
     Route: 041
     Dates: start: 20140417, end: 20140417
  6. LEVOFOLINATE [Suspect]
     Active Substance: LEVOLEUCOVORIN CALCIUM
     Dosage: 340 MG, 1X/DAY
     Route: 041
     Dates: start: 20140130, end: 20140130
  7. 5-FU /00098801/ [Concomitant]
     Active Substance: FLUOROURACIL
     Dosage: 4150 MG, UNK
     Dates: start: 20140116, end: 20140626
  8. CAMPTO [Suspect]
     Active Substance: IRINOTECAN
     Dosage: 250 MG, 1X/DAY
     Route: 041
     Dates: start: 20140213, end: 20140213
  9. CAMPTO [Suspect]
     Active Substance: IRINOTECAN
     Dosage: 250 MG, 1X/DAY
     Route: 041
     Dates: start: 20140508, end: 20140508
  10. CAMPTO [Suspect]
     Active Substance: IRINOTECAN
     Dosage: 250 MG, 1X/DAY
     Route: 041
     Dates: start: 20140626, end: 20140626
  11. ELPLAT [Suspect]
     Active Substance: OXALIPLATIN
     Dosage: 140 MG, 1X/DAY
     Route: 041
     Dates: start: 20140213, end: 20140213
  12. ELPLAT [Suspect]
     Active Substance: OXALIPLATIN
     Dosage: 140 MG, 1X/DAY
     Route: 041
     Dates: start: 20140313, end: 20140313
  13. LEVOFOLINATE [Suspect]
     Active Substance: LEVOLEUCOVORIN CALCIUM
     Dosage: 340 MG, 1X/DAY
     Route: 041
     Dates: start: 20140227, end: 20140227
  14. LEVOFOLINATE [Suspect]
     Active Substance: LEVOLEUCOVORIN CALCIUM
     Dosage: 330 MG, 1X/DAY
     Route: 041
     Dates: start: 20140626, end: 20140626
  15. CAMPTO [Suspect]
     Active Substance: IRINOTECAN
     Dosage: 250 MG, 1X/DAY
     Route: 041
     Dates: start: 20140327, end: 20140327
  16. ELPLAT [Suspect]
     Active Substance: OXALIPLATIN
     Dosage: 140 MG, 1X/DAY
     Route: 041
     Dates: start: 20140327, end: 20140327
  17. ELPLAT [Suspect]
     Active Substance: OXALIPLATIN
     Dosage: 140 MG, 1X/DAY
     Route: 041
     Dates: start: 20140605, end: 20140605
  18. ELPLAT [Suspect]
     Active Substance: OXALIPLATIN
     Dosage: 140 MG, 1X/DAY
     Route: 041
     Dates: start: 20140626, end: 20140626
  19. LEVOFOLINATE [Suspect]
     Active Substance: LEVOLEUCOVORIN CALCIUM
     Dosage: 340 MG, 1X/DAY
     Route: 041
     Dates: start: 20140522, end: 20140522
  20. LEVOFOLINATE [Suspect]
     Active Substance: LEVOLEUCOVORIN CALCIUM
     Dosage: 340 MG, 1X/DAY
     Route: 041
     Dates: start: 20140605, end: 20140605
  21. CAMPTO [Suspect]
     Active Substance: IRINOTECAN
     Dosage: 250 MG, 1X/DAY
     Route: 041
     Dates: start: 20140130, end: 20140130
  22. CAMPTO [Suspect]
     Active Substance: IRINOTECAN
     Dosage: 250 MG, 1X/DAY
     Route: 041
     Dates: start: 20140227, end: 20140227
  23. ELPLAT [Suspect]
     Active Substance: OXALIPLATIN
     Dosage: 140 MG, 1X/DAY
     Route: 041
     Dates: start: 20140417, end: 20140417
  24. ELPLAT [Suspect]
     Active Substance: OXALIPLATIN
     Dosage: 140 MG, 1X/DAY
     Route: 041
     Dates: start: 20140522, end: 20140522
  25. LEVOFOLINATE [Suspect]
     Active Substance: LEVOLEUCOVORIN CALCIUM
     Indication: PANCREATIC CARCINOMA
     Dosage: 340 MG, 1X/DAY
     Route: 041
     Dates: start: 20140116, end: 20140116
  26. LEVOFOLINATE [Suspect]
     Active Substance: LEVOLEUCOVORIN CALCIUM
     Dosage: 340 MG, 1X/DAY
     Route: 041
     Dates: start: 20140508, end: 20140508
  27. CAMPTO [Suspect]
     Active Substance: IRINOTECAN
     Indication: PANCREATIC CARCINOMA
     Dosage: 250 MG, 1X/DAY
     Route: 041
     Dates: start: 20140116, end: 20140116
  28. CAMPTO [Suspect]
     Active Substance: IRINOTECAN
     Dosage: 250 MG, 1X/DAY
     Route: 041
     Dates: start: 20140605, end: 20140605
  29. ELPLAT [Suspect]
     Active Substance: OXALIPLATIN
     Indication: PANCREATIC CARCINOMA
     Dosage: 140 MG, 1X/DAY
     Route: 041
     Dates: start: 20140116, end: 20140116
  30. ELPLAT [Suspect]
     Active Substance: OXALIPLATIN
     Dosage: 140 MG, 1X/DAY
     Route: 041
     Dates: start: 20140227, end: 20140227
  31. CAMPTO [Suspect]
     Active Substance: IRINOTECAN
     Dosage: 250 MG, 1X/DAY
     Route: 041
     Dates: start: 20140313, end: 20140313
  32. ELPLAT [Suspect]
     Active Substance: OXALIPLATIN
     Dosage: 140 MG, 1X/DAY
     Route: 041
     Dates: start: 20140508, end: 20140508
  33. LEVOFOLINATE [Suspect]
     Active Substance: LEVOLEUCOVORIN CALCIUM
     Dosage: 340 MG, 1X/DAY
     Route: 041
     Dates: start: 20140213, end: 20140213
  34. LEVOFOLINATE [Suspect]
     Active Substance: LEVOLEUCOVORIN CALCIUM
     Dosage: 340 MG, 1X/DAY
     Route: 041
     Dates: start: 20140327, end: 20140327
  35. LEVOFOLINATE [Suspect]
     Active Substance: LEVOLEUCOVORIN CALCIUM
     Dosage: 340 MG, 1X/DAY
     Route: 041
     Dates: start: 20140417, end: 20140417

REACTIONS (8)
  - Neoplasm progression [Fatal]
  - Nausea [Unknown]
  - Vomiting [Unknown]
  - Hyperglycaemia [Unknown]
  - Fatigue [Unknown]
  - Decreased appetite [Unknown]
  - Peripheral sensory neuropathy [Unknown]
  - Stomatitis [Unknown]
